FAERS Safety Report 10080949 (Version 1)
Quarter: 2014Q2

REPORT INFORMATION
  Report Type: Spontaneous
  Country: US (occurrence: None)
  Receive Date: 20140414
  Receipt Date: 20140414
  Transmission Date: 20141212
  Serious: Yes (Hospitalization)
  Sender: FDA-Public Use
  Company Number: 7279713

PATIENT
  Age: 17 Year
  Sex: Male

DRUGS (4)
  1. LEVOTHYROXINE [Suspect]
     Indication: BLOOD THYROID STIMULATING HORMONE INCREASED
  2. DIVALPROEX SODIUM [Suspect]
     Indication: SCHIZOPHRENIA, PARANOID TYPE
  3. RISPERIDONE [Suspect]
     Indication: SCHIZOPHRENIA, PARANOID TYPE
  4. CLOZAPINE [Suspect]
     Indication: PSYCHOTIC DISORDER

REACTIONS (7)
  - Psychotic disorder [None]
  - Sinus tachycardia [None]
  - Apathy [None]
  - Social avoidant behaviour [None]
  - Thinking abnormal [None]
  - Anxiety [None]
  - Poor personal hygiene [None]
